FAERS Safety Report 14942389 (Version 1)
Quarter: 2018Q2

REPORT INFORMATION
  Report Type: Spontaneous
  Country: FR (occurrence: FR)
  Receive Date: 20180528
  Receipt Date: 20180528
  Transmission Date: 20180711
  Serious: Yes (Other)
  Sender: FDA-Public Use
  Company Number: FR-MERCK KGAA-2048519

PATIENT
  Age: 78 Year
  Sex: Female

DRUGS (1)
  1. NOVOTHYROX [Suspect]
     Active Substance: LEVOTHYROXINE SODIUM
     Indication: PRODUCT USED FOR UNKNOWN INDICATION
     Dates: start: 201704

REACTIONS (24)
  - Myalgia [None]
  - Visual impairment [None]
  - Pain [None]
  - Muscle spasms [None]
  - Insomnia [None]
  - Diarrhoea [None]
  - General physical health deterioration [None]
  - Hyperhidrosis [None]
  - Arthralgia [None]
  - Anxiety [None]
  - Malaise [None]
  - Thyroxine decreased [Recovered/Resolved]
  - Pruritus [None]
  - Nausea [None]
  - Fatigue [None]
  - Weight decreased [None]
  - Gait disturbance [None]
  - Reading disorder [None]
  - Emotional distress [None]
  - Blood thyroid stimulating hormone increased [Recovering/Resolving]
  - Social avoidant behaviour [None]
  - Headache [None]
  - Pyrexia [None]
  - Palpitations [None]

NARRATIVE: CASE EVENT DATE: 2017
